FAERS Safety Report 4357908-5 (Version None)
Quarter: 2004Q2

REPORT INFORMATION
  Report Type: 
  Country: None (occurrence: None)
  Receive Date: 20040513
  Receipt Date: 20040513
  Transmission Date: 20050107
  Serious: Yes (Other)
  Sender: FDA-Public Use
  Company Number: None

PATIENT
  Sex: Female
  Weight: 46.7205 kg

DRUGS (3)
  1. HERCEPTIN [Suspect]
     Indication: BREAST CANCER
     Dosage: 200 MG IV X 1 100 MG IV WEEKLY
     Route: 042
     Dates: start: 20020701, end: 20021104
  2. HERCEPTIN [Suspect]
     Indication: BREAST CANCER
     Dosage: 200 MG IV X 1 100 MG IV WEEKLY
     Route: 042
     Dates: start: 20020624
  3. TAXOTERE [Concomitant]

REACTIONS (1)
  - EJECTION FRACTION DECREASED [None]
